FAERS Safety Report 16716390 (Version 1)
Quarter: 2019Q3

REPORT INFORMATION
  Report Type: Report from Study
  Country: GB (occurrence: GB)
  Receive Date: 20190819
  Receipt Date: 20190819
  Transmission Date: 20191005
  Serious: Yes (Hospitalization)
  Sender: FDA-Public Use
  Company Number: GB-EISAI MEDICAL RESEARCH-EC-2019-060375

PATIENT
  Age: 69 Year
  Sex: Male
  Weight: 102.8 kg

DRUGS (4)
  1. SIMVASTATIN. [Concomitant]
     Active Substance: SIMVASTATIN
     Dates: start: 199001
  2. LENVATINIB [Suspect]
     Active Substance: LENVATINIB
     Indication: HEPATOBILIARY CANCER
     Route: 048
     Dates: start: 20190730, end: 20190730
  3. PEMBROLIZUMAB. [Suspect]
     Active Substance: PEMBROLIZUMAB
     Indication: HEPATOBILIARY CANCER
     Route: 041
     Dates: start: 20190730, end: 20190730
  4. METFORMIN [Concomitant]
     Active Substance: METFORMIN HYDROCHLORIDE
     Dates: start: 199001

REACTIONS (1)
  - Pyrexia [Not Recovered/Not Resolved]

NARRATIVE: CASE EVENT DATE: 20190804
